FAERS Safety Report 5131888-7 (Version None)
Quarter: 2006Q4

REPORT INFORMATION
  Report Type: 
  Country: None (occurrence: None)
  Receive Date: 20061016
  Receipt Date: 20061004
  Transmission Date: 20070319
  Serious: Yes (Life-Threatening)
  Sender: FDA-Public Use
  Company Number: 2006086102

PATIENT
  Age: 56 Year
  Sex: Male
  Weight: 96.3 kg

DRUGS (2)
  1. SUTENT [Suspect]
     Indication: RENAL CANCER METASTATIC
     Dosage: 50 MG (50 MG, 1 IN 1 D), ORAL; 5 MG (5 MG, 1 IN 1 D), ORAL
     Route: 048
     Dates: start: 20060209, end: 20060406
  2. NORVASC [Concomitant]

REACTIONS (2)
  - CONDITION AGGRAVATED [None]
  - PROTEINURIA [None]
